FAERS Safety Report 9993285 (Version 2)
Quarter: 2014Q1

REPORT INFORMATION
  Report Type: Report from Study
  Country: IE (occurrence: IE)
  Receive Date: 20140310
  Receipt Date: 20140326
  Transmission Date: 20141002
  Serious: Yes (Hospitalization, Other)
  Sender: FDA-Public Use
  Company Number: PHHY2014IE028228

PATIENT
  Age: 48 Year
  Sex: Female

DRUGS (1)
  1. GILENYA [Suspect]
     Indication: RELAPSING-REMITTING MULTIPLE SCLEROSIS
     Dosage: 0.5 MG, QD
     Route: 048
     Dates: start: 20140306

REACTIONS (4)
  - Atrial fibrillation [Recovering/Resolving]
  - Bradycardia [Recovering/Resolving]
  - Blood pressure decreased [Unknown]
  - Heart rate irregular [Recovering/Resolving]
